FAERS Safety Report 23163137 (Version 3)
Quarter: 2024Q1

REPORT INFORMATION
  Report Type: Spontaneous
  Country: AR (occurrence: AR)
  Receive Date: 20231109
  Receipt Date: 20240115
  Transmission Date: 20240410
  Serious: No
  Sender: FDA-Public Use
  Company Number: AR-PFIZER INC-PV202300174167

PATIENT
  Age: 8 Year
  Sex: Female

DRUGS (2)
  1. GENOTROPIN [Suspect]
     Active Substance: SOMATROPIN
     Indication: Foetal growth restriction
     Dosage: 0.6 TO 1MG 6 TIMES PER WEEK
     Dates: start: 20221105
  2. GENOTROPIN [Suspect]
     Active Substance: SOMATROPIN
     Dosage: 0.9MG FOR 3 DAYS AND 1 MG THE OTHER 3 DAYS, FREQUENCY OF 6 TIMES PER WEEK

REACTIONS (5)
  - Drug dose omission by device [Not Recovered/Not Resolved]
  - Device breakage [Not Recovered/Not Resolved]
  - Device use error [Unknown]
  - Off label use [Unknown]
  - Off label use [Unknown]
